FAERS Safety Report 8054644-9 (Version None)
Quarter: 2012Q1

REPORT INFORMATION
  Report Type: 
  Country: None (occurrence: None)
  Receive Date: 20120119
  Receipt Date: 20120112
  Transmission Date: 20120608
  Serious: Yes (Death, Hospitalization, Other)
  Sender: FDA-Public Use
  Company Number: US-BAYER-200940377NA

PATIENT
  Age: 80 Year
  Sex: Female
  Weight: 78.912 kg

DRUGS (14)
  1. ATROPINE [Concomitant]
  2. MECLIZINE [Concomitant]
     Dosage: 25 MG, UNK
     Route: 048
  3. SIMVASTATIN [Concomitant]
     Dosage: 40 UNK, UNK
  4. DILTIAZEM HCL [Concomitant]
     Dosage: 300 MG, UNK
     Route: 048
  5. TRASYLOL [Suspect]
     Indication: HIGH FREQUENCY ABLATION
  6. LANOXIN [Concomitant]
     Dosage: 0.125 MG, UNK
     Route: 048
  7. FUROSEMIDE [Concomitant]
     Dosage: 40 MG, UNK
     Route: 048
  8. EPINEPHRINE [Concomitant]
  9. VERSED [Concomitant]
     Dosage: UNK
     Route: 042
     Dates: start: 20061006, end: 20061006
  10. TRASYLOL [Suspect]
     Indication: CORONARY ARTERY BYPASS
     Dosage: 200ML, FOLLOWED BY 50CC/HR
     Route: 042
     Dates: start: 20061006, end: 20061006
  11. TRASYLOL [Suspect]
     Indication: ANEURYSM REPAIR
  12. VANCOMYCIN [Concomitant]
     Dosage: 1 G, UNK
     Route: 042
     Dates: start: 20061006, end: 20061006
  13. TORADOL [Concomitant]
     Dosage: UNK
  14. TIAZAC [Concomitant]
     Route: 048

REACTIONS (14)
  - RENAL INJURY [None]
  - DEATH [None]
  - INJURY [None]
  - EMOTIONAL DISTRESS [None]
  - STRESS [None]
  - ANXIETY [None]
  - MULTI-ORGAN FAILURE [None]
  - RENAL FAILURE [None]
  - ANHEDONIA [None]
  - RENAL IMPAIRMENT [None]
  - UNEVALUABLE EVENT [None]
  - FEAR [None]
  - PAIN [None]
  - EMOTIONAL DISORDER [None]
